FAERS Safety Report 8976419 (Version 1)
Quarter: 2012Q4

REPORT INFORMATION
  Report Type: 
  Country: FR (occurrence: FR)
  Receive Date: 20121220
  Receipt Date: 20121220
  Transmission Date: 20130627
  Serious: Yes (Hospitalization)
  Sender: FDA-Public Use
  Company Number: FR-JNJFOC-20121208660

PATIENT
  Age: 84 Year
  Sex: Female

DRUGS (8)
  1. XARELTO [Suspect]
     Indication: PRODUCT USED FOR UNKNOWN INDICATION
     Route: 048
     Dates: start: 20120911, end: 20120927
  2. FUROSEMIDE [Concomitant]
     Route: 065
  3. DOLIPRANE [Concomitant]
     Route: 065
  4. OMEPRAZOLE [Concomitant]
     Route: 065
  5. ZOLPIDEM [Concomitant]
     Route: 065
  6. LEVOTHYROXINE SODIUM [Concomitant]
     Route: 065
  7. TEMERIT [Concomitant]
     Route: 065
  8. TRIATEC [Concomitant]
     Route: 065

REACTIONS (3)
  - Rectal haemorrhage [Recovered/Resolved]
  - Prothrombin level abnormal [Recovered/Resolved]
  - Malaise [Recovered/Resolved]
